FAERS Safety Report 15309675 (Version 1)
Quarter: 2018Q3

REPORT INFORMATION
  Report Type: Spontaneous
  Country: US (occurrence: US)
  Receive Date: 20180812
  Receipt Date: 20180812
  Transmission Date: 20181010
  Serious: Yes (Other)
  Sender: FDA-Public Use
  Company Number: None

PATIENT
  Age: 73 Year
  Sex: Male
  Weight: 81 kg

DRUGS (1)
  1. KEYTRUDA [Suspect]
     Active Substance: PEMBROLIZUMAB
     Indication: MALIGNANT MELANOMA
     Dosage: ?          OTHER FREQUENCY:Q 21 DAYS;?
     Route: 042
     Dates: start: 20180220, end: 20180403

REACTIONS (2)
  - Dermatitis psoriasiform [None]
  - Pneumonitis [None]

NARRATIVE: CASE EVENT DATE: 20180424
